FAERS Safety Report 17538033 (Version 1)
Quarter: 2020Q1

REPORT INFORMATION
  Report Type: Spontaneous
  Country: FR (occurrence: FR)
  Receive Date: 20200313
  Receipt Date: 20200313
  Transmission Date: 20200409
  Serious: Yes (Hospitalization)
  Sender: FDA-Public Use
  Company Number: FR-PFIZER INC-2020105854

PATIENT
  Age: 79 Year
  Sex: Female

DRUGS (2)
  1. SEROPLEX [Interacting]
     Active Substance: ESCITALOPRAM OXALATE
     Indication: DEPRESSION
     Dosage: 5 MG, 1X/DAY
     Route: 048
     Dates: end: 20200131
  2. ZYVOXID [Suspect]
     Active Substance: LINEZOLID
     Indication: ECTHYMA
     Dosage: 1200 MG, 1X/DAY
     Route: 048
     Dates: start: 20200125, end: 20200131

REACTIONS (4)
  - Product availability issue [Not Recovered/Not Resolved]
  - Serotonin syndrome [Not Recovered/Not Resolved]
  - Off label use [Unknown]
  - Drug interaction [Not Recovered/Not Resolved]

NARRATIVE: CASE EVENT DATE: 20200125
